FAERS Safety Report 4368181-6 (Version None)
Quarter: 2004Q2

REPORT INFORMATION
  Report Type: 
  Country: None (occurrence: None)
  Receive Date: 20040602
  Receipt Date: 20040213
  Transmission Date: 20050107
  Serious: Yes (Hospitalization)
  Sender: FDA-Public Use
  Company Number: US-BRISTOL-MYERS SQUIBB COMPANY-12508032

PATIENT
  Age: 42 Year
  Sex: Male

DRUGS (18)
  1. CETUXIMAB [Suspect]
     Indication: COLORECTAL CANCER
     Dosage: THERAPY INITIATED 04 FEB 2004. 458 MG ADMINISTERED ON 26-FEB-2004.
     Route: 042
     Dates: start: 20040211, end: 20040211
  2. IRINOTECAN [Suspect]
     Indication: COLORECTAL CANCER
     Dosage: SUBSEQUENT DOSE 572 MG ADMINISTERED ON 26-FEB-2004.
     Route: 042
     Dates: start: 20040204, end: 20040204
  3. COUMADIN [Concomitant]
  4. NEURONTIN [Concomitant]
     Dosage: 600MG DAILY UNTIL 12-FEB-03,1800MG/DAY 13-18 FEB,600MG/DAY FROM 19-FEB-04
     Route: 048
     Dates: start: 20031021
  5. KYTRIL [Concomitant]
     Indication: PREMEDICATION
     Route: 048
     Dates: start: 20040211, end: 20040211
  6. DECADRON [Concomitant]
     Indication: PREMEDICATION
  7. BENADRYL [Concomitant]
     Indication: PREMEDICATION
     Route: 042
     Dates: start: 20040211, end: 20040211
  8. DURAGESIC [Concomitant]
     Dates: start: 20031001
  9. LISINOPRIL [Concomitant]
     Route: 048
     Dates: start: 19980101, end: 20040212
  10. LIPITOR [Concomitant]
     Route: 048
     Dates: start: 19980101, end: 20040212
  11. COUMADIN [Concomitant]
     Route: 048
     Dates: start: 20030601, end: 20040212
  12. XANAX [Concomitant]
     Route: 048
     Dates: start: 20040207, end: 20040226
  13. LOVENOX [Concomitant]
     Dates: start: 20040218, end: 20040318
  14. IMODIUM [Concomitant]
     Route: 048
     Dates: start: 20040225, end: 20040226
  15. HEPARIN [Concomitant]
     Route: 042
     Dates: start: 20040215, end: 20040217
  16. VANCOMYCIN [Concomitant]
     Route: 042
     Dates: start: 20040213, end: 20040225
  17. PROTONIX [Concomitant]
     Dates: start: 20040213
  18. COMPAZINE [Concomitant]
     Route: 048
     Dates: start: 20031021

REACTIONS (11)
  - BLOOD SODIUM DECREASED [None]
  - DEHYDRATION [None]
  - DIARRHOEA [None]
  - FEBRILE NEUTROPENIA [None]
  - GASTROINTESTINAL HAEMORRHAGE [None]
  - HAEMATEMESIS [None]
  - HAEMATOCRIT DECREASED [None]
  - HAEMOGLOBIN DECREASED [None]
  - HYPOTENSION [None]
  - INTERNATIONAL NORMALISED RATIO INCREASED [None]
  - STREPTOCOCCAL SEPSIS [None]
